FAERS Safety Report 7519155-5 (Version None)
Quarter: 2011Q2

REPORT INFORMATION
  Report Type: 
  Country: None (occurrence: None)
  Receive Date: 20110602
  Receipt Date: 20110523
  Transmission Date: 20111010
  Serious: Yes (Other)
  Sender: FDA-Public Use
  Company Number: US-ROCHE-779038

PATIENT
  Sex: Female

DRUGS (3)
  1. GEMCITABINE [Suspect]
     Dosage: ON DAYS 1 AND 8
     Route: 065
  2. DOCETAXEL [Suspect]
     Dosage: ON DAY 1
     Route: 065
  3. CAPECITABINE [Suspect]
     Dosage: ON DAY 1-14 OF THE 3 WEEK CYCLE.
     Route: 065

REACTIONS (17)
  - FEBRILE NEUTROPENIA [None]
  - FATIGUE [None]
  - ASTHENIA [None]
  - NAUSEA [None]
  - DYSPNOEA [None]
  - PULMONARY EMBOLISM [None]
  - LEUKOPENIA [None]
  - PERIPHERAL SENSORY NEUROPATHY [None]
  - ALANINE AMINOTRANSFERASE INCREASED [None]
  - ANAEMIA [None]
  - ASPARTATE AMINOTRANSFERASE INCREASED [None]
  - DIARRHOEA [None]
  - PALMAR-PLANTAR ERYTHRODYSAESTHESIA SYNDROME [None]
  - INTESTINAL PERFORATION [None]
  - MUCOSAL INFLAMMATION [None]
  - VOMITING [None]
  - NEUTROPENIA [None]
